FAERS Safety Report 6731435-X (Version None)
Quarter: 2010Q2

REPORT INFORMATION
  Report Type: 
  Country: None (occurrence: None)
  Receive Date: 20100518
  Receipt Date: 20100518
  Transmission Date: 20101027
  Serious: No
  Sender: FDA-Public Use
  Company Number: None

PATIENT
  Age: 26 Year
  Sex: Female
  Weight: 56.6996 kg

DRUGS (3)
  1. CIPROFLOXACIN [Suspect]
     Indication: URINARY TRACT INFECTION
     Dosage: 500 MG BID PO
     Route: 048
     Dates: start: 20100307, end: 20100308
  2. WELLBUTRIN XL [Concomitant]
  3. LOESTRIN FE 1/20 [Concomitant]

REACTIONS (25)
  - ACTIVITIES OF DAILY LIVING IMPAIRED [None]
  - ARTHRALGIA [None]
  - BEDRIDDEN [None]
  - CONVERSION DISORDER [None]
  - CRYING [None]
  - DIPLOPIA [None]
  - DISTURBANCE IN ATTENTION [None]
  - FORMICATION [None]
  - GAIT DISTURBANCE [None]
  - GUILLAIN-BARRE SYNDROME [None]
  - HEPATIC ENZYME INCREASED [None]
  - IMPAIRED DRIVING ABILITY [None]
  - INFLAMMATION [None]
  - INSOMNIA [None]
  - JOINT CREPITATION [None]
  - MOBILITY DECREASED [None]
  - MUSCLE SPASMS [None]
  - MUSCULAR WEAKNESS [None]
  - NEUROLOGICAL SYMPTOM [None]
  - PAIN [None]
  - PARAESTHESIA [None]
  - RHABDOMYOLYSIS [None]
  - SENSORY DISTURBANCE [None]
  - VISION BLURRED [None]
  - VITREOUS FLOATERS [None]
